FAERS Safety Report 6128508-1 (Version None)
Quarter: 2009Q1

REPORT INFORMATION
  Report Type: 
  Country: None (occurrence: None)
  Receive Date: 20090319
  Receipt Date: 20090305
  Transmission Date: 20090719
  Serious: Yes (Death, Hospitalization)
  Sender: FDA-Public Use
  Company Number: 02100-JPN-06-0516

PATIENT
  Age: 81 Year
  Sex: Female

DRUGS (13)
  1. PLETAL [Suspect]
     Indication: CEREBRAL INFARCTION
     Dosage: 100 MG, BID ORAL
     Route: 048
     Dates: start: 20061012, end: 20061107
  2. SUCRALFATE [Concomitant]
  3. GAMMA-LINOLENIC ACID (GAMMA-LINOLENIC ACID) [Concomitant]
  4. TRAZODONE HCL [Concomitant]
  5. CALCIUM POLYCARBOPHIL (CALCIUM POLYCARBOPHIL) [Concomitant]
  6. MAGNESIUM OXIDE (MAGNESIUM OXIDE) [Concomitant]
  7. CITICOLINE (CITICOLINE) [Concomitant]
  8. THIOCTIC ACID (THIOCTIC ACID) [Concomitant]
  9. HUMAN INSULIN (HUMAN INSULIN) [Concomitant]
  10. INSULIN LISPRO (INSULIN LISPRO) [Concomitant]
  11. ASPIRIN [Concomitant]
  12. KETOPROFEN [Concomitant]
  13. TEGASEROD HYDROGEN MALEATE (TEGASEROD HYDROGEN MALEATE) [Concomitant]

REACTIONS (7)
  - ABDOMINAL DISTENSION [None]
  - CEREBRAL INFARCTION [None]
  - DISEASE RECURRENCE [None]
  - DYSPNOEA [None]
  - HEART RATE INCREASED [None]
  - HYPERHIDROSIS [None]
  - SOMNOLENCE [None]
